FAERS Safety Report 23192895 (Version 1)
Quarter: 2023Q4

REPORT INFORMATION
  Report Type: Spontaneous
  Country: US (occurrence: US)
  Receive Date: 20231116
  Receipt Date: 20231116
  Transmission Date: 20240110
  Serious: No
  Sender: FDA-Public Use
  Company Number: US-SA-2023SA352426

PATIENT
  Age: 80 Year
  Sex: Male

DRUGS (11)
  1. DUPIXENT [Suspect]
     Active Substance: DUPILUMAB
     Indication: Asthma
     Dosage: UNK UNK, 1X
  2. DUPIXENT [Suspect]
     Active Substance: DUPILUMAB
     Dosage: 200 MG, QOW
  3. DUPIXENT [Suspect]
     Active Substance: DUPILUMAB
     Dosage: 300 MG, QOW
  4. AMLODIPINE [Concomitant]
     Active Substance: AMLODIPINE BESYLATE
     Indication: Blood pressure measurement
  5. LOSARTAN [Concomitant]
     Active Substance: LOSARTAN
     Indication: Blood pressure measurement
  6. FINASTERIDE [Concomitant]
     Active Substance: FINASTERIDE
  7. TERAZOSIN [Concomitant]
     Active Substance: TERAZOSIN HYDROCHLORIDE
  8. OMEPRAZOLE [Concomitant]
     Active Substance: OMEPRAZOLE
  9. TADALAFIL [Concomitant]
     Active Substance: TADALAFIL
  10. FLUTICASONE [Concomitant]
     Active Substance: FLUTICASONE
     Indication: Productive cough
     Dosage: AS NEEDED
  11. PREDNISONE [Concomitant]
     Active Substance: PREDNISONE
     Dosage: AS NEEDED

REACTIONS (7)
  - Arthritis [Unknown]
  - Hypoacusis [Unknown]
  - Platelet count decreased [Unknown]
  - Productive cough [Unknown]
  - Pain [Unknown]
  - Therapeutic response decreased [Unknown]
  - Spinal laminectomy [Unknown]
